FAERS Safety Report 10362452 (Version 1)
Quarter: 2014Q3

REPORT INFORMATION
  Report Type: Spontaneous
  Country: US (occurrence: US)
  Receive Date: 20140805
  Receipt Date: 20140805
  Transmission Date: 20150326
  Serious: Yes (Hospitalization)
  Sender: FDA-Public Use
  Company Number: PHHY2014US093933

PATIENT
  Age: 62 Year
  Sex: Female

DRUGS (6)
  1. SIMVASTATIN. [Concomitant]
     Active Substance: SIMVASTATIN
  2. CLOPIDOGREL [Concomitant]
     Active Substance: CLOPIDOGREL BISULFATE
  3. METOPROLOL [Concomitant]
     Active Substance: METOPROLOL
  4. ASPIRIN. [Concomitant]
     Active Substance: ASPIRIN
  5. LISINOPRIL. [Concomitant]
     Active Substance: LISINOPRIL
  6. COTRIMOXAZOLE [Suspect]
     Active Substance: SULFAMETHOXAZOLE\TRIMETHOPRIM
     Indication: URINARY TRACT INFECTION
     Route: 048

REACTIONS (14)
  - Skin exfoliation [Recovered/Resolved]
  - Renal failure acute [Recovered/Resolved]
  - Cardiac failure congestive [Recovered/Resolved]
  - Pseudomonas infection [Recovered/Resolved]
  - Rash erythematous [Recovered/Resolved]
  - Acute respiratory distress syndrome [Recovered/Resolved]
  - Skin lesion [Recovered/Resolved]
  - Blister [Recovered/Resolved]
  - Toxic epidermal necrolysis [Recovered/Resolved]
  - Epidermal necrosis [Recovered/Resolved]
  - Macule [Recovered/Resolved]
  - Cellulitis [Recovered/Resolved]
  - Device related sepsis [Recovered/Resolved]
  - Acinetobacter infection [Recovered/Resolved]
